FAERS Safety Report 4674402-2 (Version None)
Quarter: 2005Q2

REPORT INFORMATION
  Report Type: 
  Country: None (occurrence: None)
  Receive Date: 20050524
  Receipt Date: 20050511
  Transmission Date: 20051028
  Serious: Yes (Hospitalization, Other)
  Sender: FDA-Public Use
  Company Number: 2005062771

PATIENT
  Age: 64 Year
  Sex: Female
  Weight: 72.5755 kg

DRUGS (5)
  1. CELEBREX [Suspect]
     Indication: ARTHRALGIA
     Dosage: (200 MG), ORAL
     Route: 048
     Dates: start: 19990222, end: 20010101
  2. BEXTRA [Suspect]
     Indication: ARTHRALGIA
     Dosage: 20 MG (20 MG, 1 IN 1 D), ORAL
     Route: 048
     Dates: start: 20020201
  3. MAXZIDE [Suspect]
     Indication: HYPERTENSION
     Dosage: (25 MG), ORAL
     Route: 048
     Dates: start: 20000418
  4. TAMOXIFEN (TAMOXIFEN) [Suspect]
     Indication: BREAST CANCER
     Dosage: (20 MG), ORAL
     Route: 048
  5. PAXIL [Concomitant]

REACTIONS (10)
  - BACK PAIN [None]
  - BREAST CANCER FEMALE [None]
  - COMPRESSION FRACTURE [None]
  - DRUG INEFFECTIVE [None]
  - HYPERTENSION [None]
  - METASTASES TO BONE [None]
  - SHOULDER PAIN [None]
  - SKIN DISCOLOURATION [None]
  - THORACIC VERTEBRAL FRACTURE [None]
  - WHITE BLOOD CELL COUNT DECREASED [None]
